FAERS Safety Report 8915842 (Version 1)
Quarter: 2012Q4

REPORT INFORMATION
  Report Type: 
  Country: SE (occurrence: SE)
  Receive Date: 20121119
  Receipt Date: 20121119
  Transmission Date: 20130627
  Serious: Yes (Hospitalization)
  Sender: FDA-Public Use
  Company Number: SE-PFIZER INC-2012284521

PATIENT
  Age: 76 Year
  Sex: Female
  Weight: 77.2 kg

DRUGS (7)
  1. GENOTROPIN [Suspect]
     Dosage: 0.67 mg, 1x/day, 7 injections/week
     Route: 058
     Dates: start: 19990528
  2. CORTISONE ACETATE [Concomitant]
     Indication: ACTH DECREASED
     Dosage: UNK
     Dates: start: 19631201
  3. ESTRIOL [Concomitant]
     Indication: LUTEINISING HORMONE DEFICIENCY
     Dosage: UNK
     Dates: start: 19890601
  4. ESTRIOL [Concomitant]
     Indication: FOLLICLE-STIMULATING HORMONE DEFICIENCY
  5. FLUNITRAZEPAM [Concomitant]
     Indication: SLEEP DISTURBANCE
     Dosage: UNK
     Dates: start: 19960501
  6. LEVAXIN [Concomitant]
     Indication: TSH DECREASE
     Dosage: UNK
     Dates: start: 19970528
  7. KAVEPENIN [Concomitant]
     Indication: BRONCHITIS
     Dosage: UNK
     Dates: start: 19980302

REACTIONS (1)
  - Arthropathy [Unknown]
